FAERS Safety Report 9732291 (Version 1)
Quarter: 2013Q4

REPORT INFORMATION
  Report Type: Spontaneous
  Country: CA (occurrence: CA)
  Receive Date: 20131205
  Receipt Date: 20131205
  Transmission Date: 20140711
  Serious: Yes (Other)
  Sender: FDA-Public Use
  Company Number: CA-BAYER-2013-147228

PATIENT
  Age: 53 Year
  Sex: Male

DRUGS (3)
  1. XARELTO [Suspect]
     Indication: DEEP VEIN THROMBOSIS
     Dosage: 30 MG, UNK
  2. XARELTO [Suspect]
     Indication: EMBOLISM VENOUS
     Dosage: UNK
  3. ALEVE [Suspect]
     Indication: SPONDYLITIS

REACTIONS (2)
  - Nephrolithiasis [None]
  - Blood urine present [None]
